FAERS Safety Report 6323938-7 (Version None)
Quarter: 2009Q3

REPORT INFORMATION
  Report Type: 
  Country: None (occurrence: None)
  Receive Date: 20090824
  Receipt Date: 20090609
  Transmission Date: 20100115
  Serious: Yes (Other)
  Sender: FDA-Public Use
  Company Number: A0789738A

PATIENT
  Age: 66 Year
  Sex: Male

DRUGS (5)
  1. ADVAIR HFA [Suspect]
     Indication: CHRONIC OBSTRUCTIVE PULMONARY DISEASE
     Dosage: 1PUFF TWICE PER DAY
     Route: 055
     Dates: start: 20060101
  2. METHADONE [Concomitant]
  3. PREVACID [Concomitant]
  4. TRAZODONE HCL [Concomitant]
  5. ASPIRIN [Concomitant]

REACTIONS (7)
  - COUGH [None]
  - HEADACHE [None]
  - MALAISE [None]
  - NON-CARDIAC CHEST PAIN [None]
  - PAIN [None]
  - PNEUMONIA [None]
  - PYREXIA [None]
